FAERS Safety Report 9716142 (Version 1)
Quarter: 2013Q4

REPORT INFORMATION
  Report Type: Spontaneous
  Country: US (occurrence: US)
  Receive Date: 20131127
  Receipt Date: 20131127
  Transmission Date: 20140711
  Serious: Yes (Hospitalization)
  Sender: FDA-Public Use
  Company Number: US-MALLINCKRODT-T201304941

PATIENT
  Age: 18 Year
  Sex: Male

DRUGS (2)
  1. HYDROMORPHONE [Suspect]
     Indication: PRODUCT USED FOR UNKNOWN INDICATION
     Dosage: APPROX. 40 MG
     Route: 048
  2. FENTANYL [Suspect]
     Indication: PRODUCT USED FOR UNKNOWN INDICATION
     Dosage: UNK
     Route: 048

REACTIONS (3)
  - Suicide attempt [Unknown]
  - Hypertension [Unknown]
  - Tachycardia [Unknown]
